FAERS Safety Report 7568956-6 (Version None)
Quarter: 2011Q2

REPORT INFORMATION
  Report Type: 
  Country: None (occurrence: None)
  Receive Date: 20110623
  Receipt Date: 20110617
  Transmission Date: 20111010
  Serious: Yes (Hospitalization)
  Sender: FDA-Public Use
  Company Number: US-B.I. PHARMACEUTICALS,INC./RIDGEFIELD-2011-BP-15722BP

PATIENT
  Sex: Female

DRUGS (11)
  1. PRADAXA [Suspect]
     Indication: ATRIAL FIBRILLATION
     Dosage: 300 MG
     Route: 048
     Dates: start: 20110307
  2. DEXILANT [Suspect]
     Indication: ABDOMINAL DISCOMFORT
     Dosage: 60 MG
     Route: 048
     Dates: start: 20110307
  3. MULTI-VITAMIN [Concomitant]
     Indication: ROUTINE HEALTH MAINTENANCE
     Route: 048
  4. SYMBICORT [Concomitant]
     Indication: ASTHMA
  5. CRESTOR [Concomitant]
     Indication: BLOOD CHOLESTEROL INCREASED
     Route: 048
  6. WELCOR [Concomitant]
     Indication: BLOOD CHOLESTEROL INCREASED
     Route: 048
  7. SINGULAIR [Concomitant]
     Indication: ASTHMA
     Route: 048
  8. LISINOPRIL [Suspect]
     Indication: HYPERTENSION
     Dosage: 10 MG
     Route: 048
     Dates: start: 20110307
  9. LASIX [Concomitant]
     Indication: ATRIAL FIBRILLATION
     Route: 048
  10. ASPIRIN [Concomitant]
     Indication: ROUTINE HEALTH MAINTENANCE
     Dosage: 81 MG
     Route: 048
  11. ATROVENT [Concomitant]
     Indication: ASTHMA

REACTIONS (3)
  - HEMIPARESIS [None]
  - CONVULSION [None]
  - BALANCE DISORDER [None]
